FAERS Safety Report 6771201-2 (Version None)
Quarter: 2010Q2

REPORT INFORMATION
  Report Type: 
  Country: None (occurrence: None)
  Receive Date: 20100616
  Receipt Date: 20100608
  Transmission Date: 20101027
  Serious: Yes (Other)
  Sender: FDA-Public Use
  Company Number: US-BAXTER-2010BH015233

PATIENT
  Sex: Female

DRUGS (4)
  1. GAMMAGARD S/D [Suspect]
     Indication: IMMUNODEFICIENCY COMMON VARIABLE
     Route: 042
  2. GAMMAGARD S/D [Suspect]
     Indication: PRIMARY IMMUNODEFICIENCY SYNDROME
     Route: 042
  3. GAMMAGARD S/D [Suspect]
     Route: 042
     Dates: start: 20100604, end: 20100604
  4. GAMMAGARD S/D [Suspect]
     Route: 042
     Dates: start: 20100604, end: 20100604

REACTIONS (3)
  - CHEST DISCOMFORT [None]
  - PRURITUS [None]
  - RASH [None]
